FAERS Safety Report 5284106-3 (Version None)
Quarter: 2007Q1

REPORT INFORMATION
  Report Type: 
  Country: None (occurrence: None)
  Receive Date: 20061226
  Receipt Date: 20061120
  Transmission Date: 20070707
  Serious: No
  Sender: FDA-Public Use
  Company Number: 2006IP000051

PATIENT

DRUGS (1)
  1. VITRASE [Suspect]
     Indication: NERVE BLOCK
     Dosage: OPH
     Route: 047

REACTIONS (2)
  - RETINAL ARTERY OCCLUSION [None]
  - RETINAL VEIN OCCLUSION [None]
